FAERS Safety Report 9316005 (Version 1)
Quarter: 2013Q2

REPORT INFORMATION
  Report Type: Spontaneous
  Country: US (occurrence: US)
  Receive Date: 20130530
  Receipt Date: 20130530
  Transmission Date: 20140414
  Serious: No
  Sender: FDA-Public Use
  Company Number: US-BIOGENIDEC-2013BI046842

PATIENT
  Sex: Female

DRUGS (4)
  1. AVONEX [Suspect]
     Indication: MULTIPLE SCLEROSIS
     Route: 030
     Dates: start: 19971001
  2. STEROIDS [Concomitant]
  3. NEXIUM [Concomitant]
  4. XANAX [Concomitant]

REACTIONS (5)
  - Multiple sclerosis [Not Recovered/Not Resolved]
  - Visual impairment [Not Recovered/Not Resolved]
  - Motor dysfunction [Unknown]
  - Hyperhidrosis [Unknown]
  - Multiple sclerosis relapse [Recovered/Resolved]
